FAERS Safety Report 17876218 (Version 1)
Quarter: 2020Q2

REPORT INFORMATION
  Report Type: Spontaneous
  Country: US (occurrence: US)
  Receive Date: 20200609
  Receipt Date: 20200609
  Transmission Date: 20200714
  Serious: Yes (Other)
  Sender: FDA-Public Use
  Company Number: US-LEXICON PHARMACEUTICALS, INC-20-1606-00447

PATIENT
  Age: 60 Year
  Sex: Female

DRUGS (2)
  1. SANDOSTATIN [Concomitant]
     Active Substance: OCTREOTIDE ACETATE
  2. XERMELO [Suspect]
     Active Substance: TELOTRISTAT ETHYL
     Indication: CARCINOID SYNDROME
     Dates: start: 20191214

REACTIONS (7)
  - Nausea [Unknown]
  - Dizziness [Recovered/Resolved]
  - Tinnitus [Recovered/Resolved]
  - Abdominal pain upper [Unknown]
  - Defaecation urgency [Unknown]
  - Diarrhoea [Unknown]
  - Radiotherapy [Unknown]
